FAERS Safety Report 7884234-X (Version None)
Quarter: 2011Q4

REPORT INFORMATION
  Report Type: 
  Country: None (occurrence: None)
  Receive Date: 20111102
  Receipt Date: 20111028
  Transmission Date: 20120403
  Serious: No
  Sender: FDA-Public Use
  Company Number: US-PFIZER INC-2011234313

PATIENT
  Sex: Male
  Weight: 133 kg

DRUGS (6)
  1. CELEBREX [Suspect]
     Indication: BURSITIS
     Dosage: UNK
     Route: 048
  2. ACETYLSALICYLIC ACID [Concomitant]
     Indication: HYPERTENSION
     Dosage: 81 MG, DAILY
  3. FISH OIL [Concomitant]
     Dosage: 60 MG, DAILY
  4. VIOXX [Suspect]
     Indication: ARTHRALGIA
     Dosage: UNK
  5. AMLODIPINE [Concomitant]
     Indication: HYPERTENSION
     Dosage: 5 MG, DAILY
     Route: 048
  6. GLUCOSAMINE [Concomitant]
     Indication: ARTHROPATHY
     Dosage: 60 MG, DAILY

REACTIONS (2)
  - DRUG INEFFECTIVE [None]
  - GASTRIC DISORDER [None]
